FAERS Safety Report 5055978-2 (Version None)
Quarter: 2006Q3

REPORT INFORMATION
  Report Type: 
  Country: None (occurrence: None)
  Receive Date: 20060720
  Receipt Date: 20060714
  Transmission Date: 20061208
  Serious: Yes (Life-Threatening, Hospitalization)
  Sender: FDA-Public Use
  Company Number: PHBS2006JP10473

PATIENT
  Age: 60 Year
  Sex: Male

DRUGS (9)
  1. DEPAS [Suspect]
     Route: 048
     Dates: end: 20060712
  2. LENDORMIN [Suspect]
     Dosage: 0.25 MG/DAY
     Route: 048
     Dates: end: 20060712
  3. MYSLEE [Suspect]
     Route: 048
     Dates: start: 20060703, end: 20060712
  4. LOCHOL [Suspect]
     Dosage: 20 MG/DAY
     Route: 048
     Dates: end: 20060712
  5. ACINON [Concomitant]
     Route: 048
     Dates: end: 20060712
  6. OLMETEC [Concomitant]
     Dosage: UNK, UNK
     Route: 048
     Dates: end: 20060712
  7. CALBLOCK [Concomitant]
     Route: 048
     Dates: end: 20060712
  8. FERROMIA [Concomitant]
     Dates: end: 20060712
  9. EBASTEL [Concomitant]
     Route: 048
     Dates: end: 20060712

REACTIONS (15)
  - ALANINE AMINOTRANSFERASE INCREASED [None]
  - ASPARTATE AMINOTRANSFERASE INCREASED [None]
  - BLOOD CREATINE PHOSPHOKINASE INCREASED [None]
  - BLOOD CREATINE PHOSPHOKINASE MB INCREASED [None]
  - CARDIAC FAILURE CONGESTIVE [None]
  - DYSSTASIA [None]
  - DYSURIA [None]
  - GAMMA-GLUTAMYLTRANSFERASE ABNORMAL [None]
  - HEPATITIS FULMINANT [None]
  - INSOMNIA [None]
  - MALAISE [None]
  - OEDEMA PERIPHERAL [None]
  - PYREXIA [None]
  - RESPIRATORY FAILURE [None]
  - SOMNOLENCE [None]
